FAERS Safety Report 6220035-6 (Version None)
Quarter: 2009Q2

REPORT INFORMATION
  Report Type: 
  Country: None (occurrence: None)
  Receive Date: 20090609
  Receipt Date: 20090528
  Transmission Date: 20091009
  Serious: Yes (Other)
  Sender: FDA-Public Use
  Company Number: PHHY2009MX21006

PATIENT
  Age: 56 Year
  Sex: Male

DRUGS (1)
  1. DIOVAN HCT [Suspect]
     Indication: HYPERTENSION
     Dosage: 1 DF/DAY
     Route: 048
     Dates: start: 20050701

REACTIONS (4)
  - HERNIA [None]
  - INTERVERTEBRAL DISC DISPLACEMENT [None]
  - MUSCLE STRAIN [None]
  - NEURALGIA [None]
